FAERS Safety Report 7215865-8 (Version None)
Quarter: 2011Q1

REPORT INFORMATION
  Report Type: 
  Country: None (occurrence: None)
  Receive Date: 20110107
  Receipt Date: 20110103
  Transmission Date: 20110831
  Serious: Yes (Other)
  Sender: FDA-Public Use
  Company Number: US-PFIZER INC-2006122811

PATIENT
  Sex: Female

DRUGS (4)
  1. NEXIUM [Concomitant]
     Dosage: 40 MG, 1X/DAY
     Route: 048
  2. LIPITOR [Suspect]
     Dosage: UNK
     Route: 048
     Dates: start: 20040114, end: 20051001
  3. NIACIN [Concomitant]
     Dosage: UNK
  4. SYNTHROID [Concomitant]
     Indication: HYPOTHYROIDISM
     Dosage: UNK

REACTIONS (8)
  - DEPRESSION [None]
  - ASTHENIA [None]
  - COGNITIVE DISORDER [None]
  - IRRITABILITY [None]
  - DISORIENTATION [None]
  - NEUROPATHY PERIPHERAL [None]
  - AMNESIA [None]
  - FATIGUE [None]
